FAERS Safety Report 11748393 (Version 2)
Quarter: 2015Q4

REPORT INFORMATION
  Report Type: Report from Study
  Country: JP (occurrence: JP)
  Receive Date: 20151117
  Receipt Date: 20151228
  Transmission Date: 20160304
  Serious: Yes (Death, Life-Threatening)
  Sender: FDA-Public Use
  Company Number: JP-009507513-1511JPN007537

PATIENT
  Age: 86 Year
  Sex: Male

DRUGS (14)
  1. ZANTAC [Concomitant]
     Active Substance: RANITIDINE HYDROCHLORIDE
     Indication: GASTRIC ULCER
     Dosage: 150 MG, QD, FORMULATION: POR (ALSO REPORTED: DIVIDED DOSE FREQUENCY UNKNOWN)
     Route: 048
  2. KREMEZIN [Concomitant]
     Active Substance: ACTIVATED CHARCOAL
     Indication: HYPOGLYCAEMIA
     Dosage: 4 G, QD, FORMULATION: POR (ALSO REPORTED: DIVIDED DOSE FREQUENCY UNKNOWN)
     Route: 048
  3. FLUITRAN [Concomitant]
     Active Substance: TRICHLORMETHIAZIDE
     Indication: HYPERTENSION
     Dosage: 1 MG, QD FORMULATION: POR (ALSO REPORTED: DIVIDED DOSE FREQUENCY UNKNOWN)
     Route: 048
  4. DIAZOXIDE [Suspect]
     Active Substance: DIAZOXIDE
     Indication: HYPERINSULINAEMIC HYPOGLYCAEMIA
     Dosage: 50 MG, TID
     Route: 048
     Dates: start: 20150204, end: 20150218
  5. DIART [Concomitant]
     Active Substance: AZOSEMIDE
     Indication: HYPOGLYCAEMIA
     Dosage: 90 MG, QD, FORMULATION: POR (ALSO REPORTED: DIVIDED DOSE FREQUENCY UNKNOWN)
     Route: 048
  6. ALOSITOL [Concomitant]
     Active Substance: ALLOPURINOL
     Indication: HYPERURICAEMIA
     Dosage: 100 MG, QD, FORMULATION: POR (ALSO REPORTED: DIVIDED DOSE FREQUENCY UNKNOWN)
     Route: 048
  7. FERROSTEC [Concomitant]
     Active Substance: SODIUM FERROUS CITRATE
     Indication: IRON DEFICIENCY ANAEMIA
     Dosage: 50 MG, QD, FORMULATION: POR (ALSO REPORTED: DIVIDED DOSE FREQUENCY UNKNOWN)
     Route: 048
  8. SODIUM CARBONATE [Concomitant]
     Active Substance: SODIUM CARBONATE
     Indication: RENAL FAILURE
     Dosage: 3 G, QD, FORMULATION: POR (ALSO REPORTED: DIVIDED DOSE FREQUENCY UNKNOWN)
     Route: 048
  9. LIPITOR [Concomitant]
     Active Substance: ATORVASTATIN CALCIUM
     Indication: HYPOGLYCAEMIA
     Dosage: 10 MG, QD, FORMULATION: POR (ALSO REPORTED: DIVIDED DOSE FREQUENCY UNKNOWN)
     Route: 048
  10. BAYASPIRIN [Concomitant]
     Active Substance: ASPIRIN
     Indication: HYPOGLYCAEMIA
     Dosage: 100 MG, QD, FORMULATION: POR (ALSO REPORTED: DIVIDED DOSE FREQUENCY UNKNOWN)
     Route: 048
  11. LOSARTAN POTASSIUM. [Concomitant]
     Active Substance: LOSARTAN POTASSIUM
     Indication: HYPERTENSION
     Dosage: 25 MG, QD, FORMULATION: POR (ALSO REPORTED: DIVIDED DOSE FREQUENCY UNKNOWN)
     Route: 048
  12. SPIRONOLACTONE. [Concomitant]
     Active Substance: SPIRONOLACTONE
     Indication: HYPERTENSION
     Dosage: 12.5 MG, QD, FORMULATION: POR (ALSO REPORTED: DIVIDED DOSE FREQUENCY UNKNOWN)
     Route: 048
  13. PIMOBENDAN [Concomitant]
     Active Substance: PIMOBENDAN
     Indication: HYPOGLYCAEMIA
     Dosage: 2.5 MG, QD, FORMULATION: POR (ALSO REPORTED: DIVIDED DOSE FREQUENCY UNKNOWN)
     Route: 048
  14. MAINTATE [Concomitant]
     Active Substance: BISOPROLOL FUMARATE
     Indication: HYPOGLYCAEMIA
     Dosage: 0.3125 MG, QD, FORMULATION: POR (ALSO REPORTED: DIVIDED DOSE FREQUENCY UNKNOWN)
     Route: 048

REACTIONS (2)
  - Cardiac failure acute [Fatal]
  - Renal failure [Fatal]

NARRATIVE: CASE EVENT DATE: 20150218
